FAERS Safety Report 4505078-2 (Version None)
Quarter: 2004Q4

REPORT INFORMATION
  Report Type: 
  Country: None (occurrence: None)
  Receive Date: 20041117
  Receipt Date: 20041117
  Transmission Date: 20050328
  Serious: Yes (Hospitalization)
  Sender: FDA-Public Use
  Company Number: None

PATIENT
  Age: 84 Year
  Sex: Male

DRUGS (7)
  1. WARFARIN [Suspect]
     Indication: ATRIAL FIBRILLATION
     Dosage: 2.5 MG QD
     Dates: start: 20040726
  2. FLOMAX [Concomitant]
  3. OSCAL [Concomitant]
  4. FINASTERIDE [Concomitant]
  5. OMEPRAZOLE [Concomitant]
  6. DALTEPARIN [Concomitant]
  7. ALLOPURINOL [Concomitant]

REACTIONS (2)
  - HAEMORRHAGE [None]
  - LACERATION [None]
